FAERS Safety Report 10708622 (Version 4)
Quarter: 2015Q2

REPORT INFORMATION
  Report Type: Spontaneous
  Country: US (occurrence: US)
  Receive Date: 20150113
  Receipt Date: 20150406
  Transmission Date: 20150821
  Serious: Yes (Hospitalization, Other)
  Sender: FDA-Public Use
  Company Number: US-ACTELION-A-NJ2015-110799

PATIENT
  Age: 66 Year
  Sex: Female

DRUGS (2)
  1. VELETRI [Suspect]
     Active Substance: EPOPROSTENOL
     Indication: PULMONARY HYPERTENSION
     Dosage: 31 NG/KG, PER MIN
     Route: 042
     Dates: start: 20121031
  2. ADCIRCA [Concomitant]
     Active Substance: TADALAFIL

REACTIONS (21)
  - Feeling abnormal [Unknown]
  - Pleural effusion [Unknown]
  - Vomiting [Unknown]
  - Spinal fracture [Unknown]
  - Raynaud^s phenomenon [Unknown]
  - Decubitus ulcer [Unknown]
  - Headache [Unknown]
  - Constipation [Unknown]
  - Pain [Unknown]
  - Nausea [Unknown]
  - Weight decreased [Unknown]
  - Peripheral coldness [Unknown]
  - Back pain [Unknown]
  - Dyspnoea [Unknown]
  - Decreased appetite [Unknown]
  - Flushing [Unknown]
  - Condition aggravated [Unknown]
  - Insomnia [Unknown]
  - Pneumonia [Unknown]
  - Fluid overload [Unknown]
  - Diarrhoea [Unknown]

NARRATIVE: CASE EVENT DATE: 20141231
